FAERS Safety Report 6530538-2 (Version None)
Quarter: 2010Q1

REPORT INFORMATION
  Report Type: 
  Country: None (occurrence: None)
  Receive Date: 20100106
  Receipt Date: 20100106
  Transmission Date: 20100710
  Serious: No
  Sender: FDA-Public Use
  Company Number: None

PATIENT
  Sex: Female
  Weight: 90.9 kg

DRUGS (1)
  1. ZYRTEC [Suspect]
     Indication: MULTIPLE ALLERGIES
     Dosage: 10MG DAILY ORALLY
     Route: 048
     Dates: start: 20090901, end: 20091201

REACTIONS (2)
  - DRUG INTERACTION [None]
  - PALPITATIONS [None]
